FAERS Safety Report 17054308 (Version 1)
Quarter: 2019Q4

REPORT INFORMATION
  Report Type: Report from Study
  Country: CO (occurrence: CO)
  Receive Date: 20191120
  Receipt Date: 20191120
  Transmission Date: 20200122
  Serious: No
  Sender: FDA-Public Use
  Company Number: CO-JNJFOC-20191112340

PATIENT
  Age: 62 Year
  Sex: Male
  Weight: 72 kg

DRUGS (2)
  1. STELARA [Suspect]
     Active Substance: USTEKINUMAB
     Route: 058
     Dates: start: 201909
  2. STELARA [Suspect]
     Active Substance: USTEKINUMAB
     Indication: PSORIASIS
     Route: 058
     Dates: start: 20190524, end: 20190624

REACTIONS (1)
  - Blood bilirubin increased [Not Recovered/Not Resolved]

NARRATIVE: CASE EVENT DATE: 201910
